FAERS Safety Report 21483452 (Version 1)
Quarter: 2022Q4

REPORT INFORMATION
  Report Type: Spontaneous
  Country: US (occurrence: US)
  Receive Date: 20221020
  Receipt Date: 20221020
  Transmission Date: 20230113
  Serious: No
  Sender: FDA-Public Use
  Company Number: US-CELLTRION INC.-2022US003425

PATIENT

DRUGS (2)
  1. INFLECTRA [Suspect]
     Active Substance: INFLIXIMAB-DYYB
     Indication: Product used for unknown indication
     Dosage: 500 MG, CYCLIC (EVERY 56 DAYS, QUANTITY: 5 REFILLS: 11)
     Route: 042
  2. INFLECTRA [Suspect]
     Active Substance: INFLIXIMAB-DYYB
     Dosage: 760 MG, CYCLIC (EVERY 42 DAYS, QUANTITY: 8 REFILLS: 11)
     Route: 042

REACTIONS (2)
  - Unevaluable event [Unknown]
  - Product prescribing error [Unknown]
